FAERS Safety Report 8395917-X (Version None)
Quarter: 2012Q2

REPORT INFORMATION
  Report Type: 
  Country: None (occurrence: None)
  Receive Date: 20120530
  Receipt Date: 20120522
  Transmission Date: 20120825
  Serious: Yes (Other)
  Sender: FDA-Public Use
  Company Number: US-ELI_LILLY_AND_COMPANY-US200901005001

PATIENT
  Sex: Male

DRUGS (8)
  1. HUMULIN N [Suspect]
     Dosage: 8 U, EACH EVENING
  2. CORTICOSTEROIDS [Concomitant]
     Dosage: UNK
  3. HUMULIN R [Suspect]
     Dosage: 18 U, EACH EVENING
  4. HUMULIN R [Suspect]
     Dosage: 13 U, OTHER
  5. HUMULIN R [Suspect]
     Dosage: 8 U, EACH MORNING
  6. HUMULIN R [Suspect]
     Dosage: 7 U, UNK
  7. HUMULIN R [Suspect]
     Dosage: 10 U, EACH EVENING
  8. HUMULIN R [Suspect]
     Dosage: 20 U, EACH MORNING

REACTIONS (5)
  - RETINAL DISORDER [None]
  - BLINDNESS [None]
  - VISUAL ACUITY REDUCED [None]
  - BLOOD GLUCOSE INCREASED [None]
  - DRUG INEFFECTIVE [None]
